FAERS Safety Report 5445051-3 (Version None)
Quarter: 2007Q3

REPORT INFORMATION
  Report Type: 
  Country: None (occurrence: None)
  Receive Date: 20070731
  Receipt Date: 20070529
  Transmission Date: 20080115
  Serious: Yes (Other)
  Sender: FDA-Public Use
  Company Number: US200704003701

PATIENT
  Age: 50 Year
  Sex: Male
  Weight: 123.8 kg

DRUGS (11)
  1. BYETTA [Suspect]
     Dosage: 10 UG,
     Dates: start: 20060101
  2. EXENATIDE 10MCG PEN, DISPOSABLE DEVICE (EXENATIDE PEN (10MCG)) PEN,DIS [Concomitant]
  3. PRECOSE [Concomitant]
  4. REPAGLINIDE [Concomitant]
  5. PROVACHOL (PRAVASTATIN SODIUM) [Concomitant]
  6. ASPIRIN [Concomitant]
  7. COZAAR [Concomitant]
  8. METFORMIN HCL [Concomitant]
  9. OTHER VITAMIN PRODUCTS, COMBINATIONS [Concomitant]
  10. MULTIVITAMIN [Concomitant]
  11. ALL OTHER THERAPEUTIC PRODUCTS [Concomitant]

REACTIONS (3)
  - BLOOD GLUCOSE INCREASED [None]
  - PANCREATITIS [None]
  - WEIGHT DECREASED [None]
